FAERS Safety Report 5312255-X (Version None)
Quarter: 2007Q2

REPORT INFORMATION
  Report Type: 
  Country: None (occurrence: None)
  Receive Date: 20070430
  Receipt Date: 20060905
  Transmission Date: 20071010
  Serious: No
  Sender: FDA-Public Use
  Company Number: 2006UW17411

PATIENT
  Age: 85 Year
  Sex: Female

DRUGS (11)
  1. NEXIUM [Suspect]
     Route: 048
  2. SYNTHROID [Concomitant]
  3. ATENOLOL [Concomitant]
  4. DOXYCYCLINE [Concomitant]
  5. MULTI-VITAMIN [Concomitant]
  6. FOLIC ACID [Concomitant]
  7. VITAMIN D [Concomitant]
  8. LISINOPRIL [Concomitant]
  9. CALCIUM CHLORIDE [Concomitant]
  10. ACTONEL [Concomitant]
  11. XANAX [Concomitant]

REACTIONS (2)
  - CONSTIPATION [None]
  - DIURETIC EFFECT [None]
